FAERS Safety Report 7290760-7 (Version None)
Quarter: 2011Q1

REPORT INFORMATION
  Report Type: 
  Country: None (occurrence: None)
  Receive Date: 20110214
  Receipt Date: 20110207
  Transmission Date: 20110831
  Serious: Yes (Hospitalization)
  Sender: FDA-Public Use
  Company Number: CO-ROCHE-758155

PATIENT
  Sex: Female

DRUGS (4)
  1. TRAMADOL HCL [Concomitant]
     Indication: PAIN
     Dosage: DOSE: NO INFORMATION, FREQUENCY: PRN
     Route: 048
     Dates: start: 20101001
  2. ENOXAPARIN SODIUM [Concomitant]
     Indication: PAIN
     Dosage: FREQUENCY: QD, DOSE: NO INFORMATION
     Route: 048
     Dates: start: 20101001
  3. CAPECITABINE [Suspect]
     Indication: COLON CANCER
     Route: 048
     Dates: start: 20101025, end: 20101117
  4. OMEPRAZOLE [Concomitant]
     Dosage: FREQUENCY: QD. INDICATION:INTESTINAL PROTECTION
     Route: 048
     Dates: start: 20101001

REACTIONS (1)
  - INTESTINAL PERFORATION [None]
